FAERS Safety Report 4366699-3 (Version None)
Quarter: 2004Q2

REPORT INFORMATION
  Report Type: 
  Country: None (occurrence: None)
  Receive Date: 20040527
  Receipt Date: 20040514
  Transmission Date: 20050107
  Serious: Yes (Other)
  Sender: FDA-Public Use
  Company Number: 2004S1001415

PATIENT
  Age: 30 Year
  Sex: Female

DRUGS (2)
  1. METOPROLOL TARTRATE [Suspect]
     Dosage: 100MG QD ORAL
     Route: 048
     Dates: start: 20040215, end: 20040220
  2. MEDROXYPROGESTERONE INJECTION [Concomitant]

REACTIONS (5)
  - ASTHENIA [None]
  - DEPRESSION [None]
  - DYSPNOEA [None]
  - MEDICATION ERROR [None]
  - NAUSEA [None]
